FAERS Safety Report 4511294-6 (Version None)
Quarter: 2004Q4

REPORT INFORMATION
  Report Type: 
  Country: None (occurrence: None)
  Receive Date: 20041122
  Receipt Date: 20040204
  Transmission Date: 20050328
  Serious: Yes (Other)
  Sender: FDA-Public Use
  Company Number: SUS1-2004-00727

PATIENT
  Sex: 0

DRUGS (4)
  1. PENTASA [Suspect]
     Dosage: 1 G, DAILY, ORAL
     Route: 048
     Dates: start: 20040115
  2. HYDROCORTISONE ACETATE (HYDROCORTISONE ACETATE) [Concomitant]
  3. RAMIPRIL [Concomitant]
  4. ATENOLOL [Concomitant]

REACTIONS (1)
  - WHEEZING [None]
